FAERS Safety Report 6866503-5 (Version None)
Quarter: 2010Q2

REPORT INFORMATION
  Report Type: 
  Country: None (occurrence: None)
  Receive Date: 20100601
  Receipt Date: 20090504
  Transmission Date: 20101027
  Serious: Yes (Hospitalization)
  Sender: FDA-Public Use
  Company Number: 2009183547

PATIENT
  Age: 61 Year
  Sex: Male

DRUGS (2)
  1. SOLU MEDROL (METHYLPREDNISOLONE SODIUM SUCCINATE) POWDER FOR SOLUTION [Suspect]
     Indication: MYASTHENIA GRAVIS
     Dosage: 1 G, 1X/DAY, INTRAVENOUS
     Route: 042
     Dates: start: 20090224
  2. IMMUNE GLOBULIN INTRAVENOUS (HUMAN) [Suspect]
     Indication: MYASTHENIA GRAVIS
     Dosage: 40 GM; 1X, INTRAVENOUS
     Route: 042
     Dates: start: 20090224, end: 20090224

REACTIONS (1)
  - BRONCHOSPASM [None]
